FAERS Safety Report 13360029 (Version 2)
Quarter: 2017Q1

REPORT INFORMATION
  Report Type: Spontaneous
  Country: BE (occurrence: BE)
  Receive Date: 20170322
  Receipt Date: 20170330
  Transmission Date: 20170429
  Serious: Yes (Death, Other)
  Sender: FDA-Public Use
  Company Number: BE-TEVA-751090ROM

PATIENT
  Age: 53 Year
  Sex: Male

DRUGS (4)
  1. DOXORUBICIN [Suspect]
     Active Substance: DOXORUBICIN
     Indication: PANCREATIC NEUROENDOCRINE TUMOUR
     Dosage: 50 MG/M2
     Route: 025
  2. OXALIPLATIN. [Concomitant]
     Active Substance: OXALIPLATIN
     Indication: PANCREATIC NEUROENDOCRINE TUMOUR
     Dosage: 85 MG/M2 DAY 1
     Route: 050
  3. LEVOFOLINIC ACID [Concomitant]
     Active Substance: LEVOLEUCOVORIN
     Indication: PANCREATIC NEUROENDOCRINE TUMOUR
     Dosage: 200 MG/M2 DAY 1
     Route: 050
  4. FLUOROURACIL. [Concomitant]
     Active Substance: FLUOROURACIL
     Indication: PANCREATIC NEUROENDOCRINE TUMOUR
     Dosage: 400 MG/M2 BOLUS DAY 1-2
     Route: 050

REACTIONS (6)
  - Hepatic failure [Unknown]
  - Hepatic encephalopathy [Unknown]
  - Drug ineffective [Unknown]
  - Death [Fatal]
  - Toxicity to various agents [Unknown]
  - Product use issue [Unknown]
